FAERS Safety Report 18522996 (Version 1)
Quarter: 2020Q4

REPORT INFORMATION
  Report Type: Spontaneous
  Country: US (occurrence: US)
  Receive Date: 20201119
  Receipt Date: 20201119
  Transmission Date: 20210114
  Serious: No
  Sender: FDA-Public Use
  Company Number: None

PATIENT
  Age: 66 Year
  Sex: Female
  Weight: 94.5 kg

DRUGS (2)
  1. DORZOLAMIDE [Concomitant]
     Active Substance: DORZOLAMIDE
  2. ATORVASTATIN [Suspect]
     Active Substance: ATORVASTATIN
     Indication: BLOOD CHOLESTEROL INCREASED
     Dosage: ?          QUANTITY:1 TABLET(S);?
     Route: 048

REACTIONS (2)
  - Visual impairment [None]
  - Headache [None]

NARRATIVE: CASE EVENT DATE: 20201111
